FAERS Safety Report 7559959-6 (Version None)
Quarter: 2011Q2

REPORT INFORMATION
  Report Type: 
  Country: None (occurrence: None)
  Receive Date: 20110617
  Receipt Date: 20110617
  Transmission Date: 20111010
  Serious: No
  Sender: FDA-Public Use
  Company Number: None

PATIENT
  Age: 48 Year
  Sex: Female
  Weight: 58.9676 kg

DRUGS (5)
  1. MAGNESIUM [Concomitant]
  2. POTASSIUM [Concomitant]
  3. ALOXI [Concomitant]
  4. DEXAMETHASONE [Concomitant]
  5. CISPLATIN [Suspect]
     Indication: BILE DUCT CANCER
     Dosage: 50MG Q 2 WEEKS IV
     Route: 042
     Dates: start: 20110615

REACTIONS (11)
  - HYPOTENSION [None]
  - AGITATION [None]
  - INFUSION RELATED REACTION [None]
  - OXYGEN SATURATION DECREASED [None]
  - PRURITUS [None]
  - COUGH [None]
  - NAUSEA [None]
  - TACHYCARDIA [None]
  - FEELING ABNORMAL [None]
  - ERYTHEMA [None]
  - FLUSHING [None]
